FAERS Safety Report 22084284 (Version 1)
Quarter: 2023Q1

REPORT INFORMATION
  Report Type: Spontaneous
  Country: US (occurrence: US)
  Receive Date: 20230310
  Receipt Date: 20230310
  Transmission Date: 20230417
  Serious: Yes (Hospitalization, Other)
  Sender: FDA-Public Use
  Company Number: US-PROGENICS PHARMACEUTICALS/LANTHEUS HOLDINGS-LMI-2023-00242

PATIENT
  Age: 57 Year
  Sex: Female

DRUGS (3)
  1. AZEDRA [Suspect]
     Active Substance: IOBENGUANE I-131
     Indication: Product used for unknown indication
     Dosage: DOSIMETRY DOSE
     Route: 042
     Dates: start: 20200615, end: 20200615
  2. AZEDRA [Suspect]
     Active Substance: IOBENGUANE I-131
     Dosage: FIRST THERAPEUTIC DOSE
     Route: 042
     Dates: start: 20200629, end: 20200629
  3. AZEDRA [Suspect]
     Active Substance: IOBENGUANE I-131
     Dosage: FINAL THERAPEUTIC DOSE
     Route: 042
     Dates: start: 20201109, end: 20201109

REACTIONS (2)
  - Metastases to bone [Not Recovered/Not Resolved]
  - Arthralgia [Recovering/Resolving]

NARRATIVE: CASE EVENT DATE: 20230301
